FAERS Safety Report 8205710-6 (Version None)
Quarter: 2012Q1

REPORT INFORMATION
  Report Type: 
  Country: None (occurrence: None)
  Receive Date: 20120313
  Receipt Date: 20120306
  Transmission Date: 20120608
  Serious: Yes (Hospitalization, Other)
  Sender: FDA-Public Use
  Company Number: US-MPIJNJ-2012-00844

PATIENT
  Age: 28 Year
  Sex: Male
  Weight: 87.2 kg

DRUGS (17)
  1. CYCLOBENZAPRINE HCL [Concomitant]
     Indication: PRODUCT USED FOR UNKNOWN INDICATION
     Dosage: 10 MG, TID
     Route: 048
  2. ONDANSETRON [Concomitant]
     Indication: PRODUCT USED FOR UNKNOWN INDICATION
     Dosage: 4 MG, PRN
     Route: 048
  3. PANTOPRAZOLE [Concomitant]
     Indication: PRODUCT USED FOR UNKNOWN INDICATION
     Dosage: 40 MG, BID
     Route: 048
  4. CALCIUM CARBONATE [Concomitant]
     Indication: PRODUCT USED FOR UNKNOWN INDICATION
     Dosage: 500 MG, QD
     Route: 048
  5. CHOLECALCIFEROL [Concomitant]
     Indication: PRODUCT USED FOR UNKNOWN INDICATION
     Dosage: 400 UNK, QD
  6. VELCADE [Suspect]
     Indication: MULTIPLE MYELOMA
     Dosage: 2.8 MG, CYCLIC
     Route: 042
     Dates: start: 20110711
  7. MULTI-VITAMINS [Concomitant]
     Indication: PRODUCT USED FOR UNKNOWN INDICATION
     Dosage: UNK
  8. PYRIDOXINE HCL [Concomitant]
     Indication: PRODUCT USED FOR UNKNOWN INDICATION
     Dosage: UNK
  9. LENALIDOMIDE [Suspect]
     Indication: MULTIPLE MYELOMA
     Dosage: 15 MG, CYCLIC
     Route: 048
     Dates: start: 20110711
  10. DOCUSATE SODIUM [Concomitant]
     Indication: PRODUCT USED FOR UNKNOWN INDICATION
     Dosage: 100 MG, PRN
  11. DEXAMETHASONE [Suspect]
     Indication: MULTIPLE MYELOMA
     Dosage: 40 MG, CYCLIC
     Route: 048
     Dates: start: 20110711
  12. VICODIN [Concomitant]
     Indication: PRODUCT USED FOR UNKNOWN INDICATION
     Dosage: UNK
  13. ENOXAPARIN [Concomitant]
     Indication: PRODUCT USED FOR UNKNOWN INDICATION
     Dosage: 90 MG, BID
     Route: 058
     Dates: start: 20110504
  14. BISCODYL [Concomitant]
     Indication: PRODUCT USED FOR UNKNOWN INDICATION
     Dosage: 10 MG, PRN
     Route: 054
  15. METHENAMINE HIPPURATE [Concomitant]
     Indication: PRODUCT USED FOR UNKNOWN INDICATION
     Dosage: 1 G, BID
     Route: 048
  16. LOPERAMIDE [Concomitant]
     Indication: PRODUCT USED FOR UNKNOWN INDICATION
     Dosage: 2 MG, PRN
     Route: 048
  17. PROCHLORPERAZINE [Concomitant]
     Indication: PRODUCT USED FOR UNKNOWN INDICATION
     Dosage: 10 MG, PRN
     Route: 048

REACTIONS (2)
  - ALANINE AMINOTRANSFERASE INCREASED [None]
  - HERPES ZOSTER DISSEMINATED [None]
